FAERS Safety Report 9490861 (Version 1)
Quarter: 2013Q3

REPORT INFORMATION
  Report Type: Spontaneous
  Country: US (occurrence: None)
  Receive Date: 20130828
  Receipt Date: 20130828
  Transmission Date: 20140515
  Serious: Yes (Life-Threatening, Hospitalization, Disabling)
  Sender: FDA-Public Use
  Company Number: None

PATIENT
  Age: 62 Year
  Sex: Female
  Weight: 73.03 kg

DRUGS (9)
  1. JANUVIA (SITAGLIPTIN PHOSPHATE) [Suspect]
     Indication: TYPE 2 DIABETES MELLITUS
     Dosage: STRENGTH: 25MG    ONE TWICE DAILY  ORAL
     Route: 048
     Dates: start: 20091201, end: 20120731
  2. METFORMIN [Concomitant]
  3. VERAPAMIL [Concomitant]
  4. SPIRONOLACTONE [Concomitant]
  5. PREMARIN [Concomitant]
  6. NPH INSULIN [Concomitant]
  7. ATENOLOL [Concomitant]
  8. VIT D [Concomitant]
  9. ZENPEP ENZYMES [Concomitant]

REACTIONS (2)
  - Pruritus [None]
  - Benign pancreatic neoplasm [None]
